FAERS Safety Report 22341945 (Version 1)
Quarter: 2023Q2

REPORT INFORMATION
  Report Type: Report from Study
  Country: BR (occurrence: None)
  Receive Date: 20230518
  Receipt Date: 20230518
  Transmission Date: 20230721
  Serious: Yes (Hospitalization, Other)
  Sender: FDA-Public Use
  Company Number: BR-Merck Healthcare KGaA-9380948

PATIENT
  Age: 29 Year
  Sex: Female

DRUGS (1)
  1. INTERFERON BETA-1A [Suspect]
     Active Substance: INTERFERON BETA-1A
     Indication: Multiple sclerosis
     Route: 058
     Dates: start: 20190729, end: 20230510

REACTIONS (3)
  - Diabetes mellitus [Unknown]
  - Multiple sclerosis relapse [Recovered/Resolved]
  - Blood cholesterol abnormal [Recovered/Resolved]

NARRATIVE: CASE EVENT DATE: 20230113
